FAERS Safety Report 13702534 (Version 5)
Quarter: 2018Q1

REPORT INFORMATION
  Report Type: Report from Study
  Country: CA (occurrence: CA)
  Receive Date: 20170629
  Receipt Date: 20180207
  Transmission Date: 20180508
  Serious: Yes (Other)
  Sender: FDA-Public Use
  Company Number: CA-UCBSA-2017024815

PATIENT
  Age: 54 Year
  Sex: Female
  Weight: 92 kg

DRUGS (2)
  1. CERTOLIZUMAB PEGOL RA [Suspect]
     Active Substance: CERTOLIZUMAB PEGOL
     Indication: RHEUMATOID ARTHRITIS
     Dosage: 400 MG, EV 2 WEEKS(QOW) X 3
     Route: 058
     Dates: start: 20150124, end: 20150221
  2. CERTOLIZUMAB PEGOL RA [Suspect]
     Active Substance: CERTOLIZUMAB PEGOL
     Dosage: 200 MG, EV 2 WEEKS(QOW)
     Route: 058
     Dates: start: 20150307

REACTIONS (4)
  - Lower respiratory tract infection [Unknown]
  - Pneumonia [Not Recovered/Not Resolved]
  - Skin infection [Unknown]
  - Cellulitis [Recovered/Resolved]

NARRATIVE: CASE EVENT DATE: 201612
